FAERS Safety Report 12772752 (Version 1)
Quarter: 2016Q3

REPORT INFORMATION
  Report Type: Spontaneous
  Country: GB (occurrence: GB)
  Receive Date: 20160922
  Receipt Date: 20160922
  Transmission Date: 20161109
  Serious: Yes (Other)
  Sender: FDA-Public Use
  Company Number: GB-TEVA-693680ACC

PATIENT
  Age: 56 Year
  Sex: Male
  Weight: 89 kg

DRUGS (3)
  1. DIPROBASE [Concomitant]
     Active Substance: CHLOROCRESOL
     Dosage: APPLY AS NEEDED.
     Dates: start: 20160830
  2. MELOXICAM. [Concomitant]
     Active Substance: MELOXICAM
     Dosage: TAKE ONE TO TWO DAILY.
     Dates: start: 20160106
  3. GABAPENTIN. [Suspect]
     Active Substance: GABAPENTIN
     Dates: start: 20160901

REACTIONS (3)
  - Photosensitivity reaction [Recovering/Resolving]
  - Rash erythematous [Unknown]
  - Skin exfoliation [Unknown]

NARRATIVE: CASE EVENT DATE: 20160901
